FAERS Safety Report 4796825-3 (Version None)
Quarter: 2005Q3

REPORT INFORMATION
  Report Type: 
  Country: None (occurrence: None)
  Receive Date: 20050916
  Receipt Date: 20050622
  Transmission Date: 20060218
  Serious: Yes (Other)
  Sender: FDA-Public Use
  Company Number: US-JNJFOC-20050500384

PATIENT
  Age: 38 Year
  Sex: Female
  Weight: 63.5036 kg

DRUGS (1)
  1. TOPAMAX [Suspect]
     Indication: MIGRAINE
     Dosage: ORAL
     Route: 048

REACTIONS (3)
  - AGGRESSION [None]
  - AGITATION [None]
  - HOMICIDAL IDEATION [None]
